FAERS Safety Report 5602982-9 (Version None)
Quarter: 2008Q1

REPORT INFORMATION
  Report Type: 
  Country: None (occurrence: None)
  Receive Date: 20080125
  Receipt Date: 20080114
  Transmission Date: 20080703
  Serious: Yes (Hospitalization, Other)
  Sender: FDA-Public Use
  Company Number: US-PFIZER INC-2008004823

PATIENT
  Sex: Male
  Weight: 104.54 kg

DRUGS (6)
  1. CHANTIX [Suspect]
     Indication: SMOKING CESSATION THERAPY
  2. GEODON [Suspect]
     Dosage: TEXT:160MG HS EVERY DAY TDD:160MG
  3. SEROQUEL [Concomitant]
  4. DEPAKOTE [Concomitant]
  5. TRICOR [Concomitant]
  6. KLONOPIN [Concomitant]

REACTIONS (4)
  - AGGRESSION [None]
  - DRUG INEFFECTIVE [None]
  - INSOMNIA [None]
  - MALAISE [None]
